FAERS Safety Report 10169143 (Version 1)
Quarter: 2014Q2

REPORT INFORMATION
  Report Type: Spontaneous
  Country: US (occurrence: US)
  Receive Date: 20140513
  Receipt Date: 20140513
  Transmission Date: 20141212
  Serious: No
  Sender: FDA-Public Use
  Company Number: US-TARO-2014P1000001

PATIENT
  Age: 3 Year
  Sex: Female

DRUGS (1)
  1. CETIRIZINE [Suspect]
     Route: 048
     Dates: start: 20131231

REACTIONS (1)
  - Urticaria [Not Recovered/Not Resolved]
